FAERS Safety Report 8966619 (Version 1)
Quarter: 2012Q4

REPORT INFORMATION
  Report Type: 
  Country: BR (occurrence: BR)
  Receive Date: 20121217
  Receipt Date: 20121217
  Transmission Date: 20130627
  Serious: Yes (Other)
  Sender: FDA-Public Use
  Company Number: BR-ASTRAZENECA-2012SE56581

PATIENT
  Age: 48 Year
  Sex: Female
  Weight: 72.8 kg

DRUGS (6)
  1. ATENOLOL [Suspect]
     Indication: MITRAL VALVE PROLAPSE
     Route: 048
     Dates: end: 2008
  2. ATENOLOL [Suspect]
     Indication: TRICUSPID VALVE PROLAPSE
     Route: 048
     Dates: end: 2008
  3. SELOZOK [Suspect]
     Indication: MITRAL VALVE PROLAPSE
     Route: 048
     Dates: start: 2008, end: 201207
  4. SELOZOK [Suspect]
     Indication: TRICUSPID VALVE PROLAPSE
     Route: 048
     Dates: start: 2008, end: 201207
  5. SELOZOK [Suspect]
     Indication: MITRAL VALVE PROLAPSE
     Route: 048
  6. SELOZOK [Suspect]
     Indication: TRICUSPID VALVE PROLAPSE
     Route: 048

REACTIONS (4)
  - Tachycardia [Not Recovered/Not Resolved]
  - Dyspnoea [Recovered/Resolved]
  - Asthenia [Unknown]
  - Intentional drug misuse [Unknown]
